FAERS Safety Report 9932398 (Version 1)
Quarter: 2014Q1

REPORT INFORMATION
  Report Type: Spontaneous
  Country: US (occurrence: None)
  Receive Date: 20140227
  Receipt Date: 20140227
  Transmission Date: 20141002
  Serious: Yes (Other)
  Sender: FDA-Public Use
  Company Number: None

PATIENT
  Sex: 0

DRUGS (1)
  1. NORMAL SALINE [Suspect]
     Indication: HYPOVOLAEMIA
     Dosage: 500 ML 1/2 NS IV
     Route: 042
     Dates: start: 20140211, end: 20140213

REACTIONS (5)
  - Rash pruritic [None]
  - Urticaria [None]
  - Decreased appetite [None]
  - Pyrexia [None]
  - Pruritus [None]
